FAERS Safety Report 10427231 (Version 1)
Quarter: 2014Q3

REPORT INFORMATION
  Report Type: Spontaneous
  Country: FR (occurrence: FR)
  Receive Date: 20140903
  Receipt Date: 20140903
  Transmission Date: 20150326
  Serious: Yes (Other)
  Sender: FDA-Public Use
  Company Number: FR-WATSON-2014-18895

PATIENT
  Age: 58 Year
  Sex: Male

DRUGS (6)
  1. PREDNISONE                         /00044702/ [Concomitant]
     Active Substance: PREDNISONE
     Indication: IMMUNOSUPPRESSANT DRUG THERAPY
     Dosage: UNK
     Route: 065
  2. MYCOPHENOLATE MOFETIL. [Concomitant]
     Active Substance: MYCOPHENOLATE MOFETIL
     Indication: RENAL TRANSPLANT
  3. TACROLIMUS (UNKNOWN) [Suspect]
     Active Substance: TACROLIMUS
     Indication: RENAL TRANSPLANT
  4. PREDNISONE                         /00044702/ [Concomitant]
     Active Substance: PREDNISONE
     Indication: RENAL TRANSPLANT
  5. TACROLIMUS (UNKNOWN) [Suspect]
     Active Substance: TACROLIMUS
     Indication: IMMUNOSUPPRESSANT DRUG THERAPY
     Dosage: UNK
     Route: 065
  6. MYCOPHENOLATE MOFETIL. [Concomitant]
     Active Substance: MYCOPHENOLATE MOFETIL
     Indication: IMMUNOSUPPRESSANT DRUG THERAPY
     Dosage: UNK
     Route: 065

REACTIONS (4)
  - Osteomalacia [Recovered/Resolved]
  - Hypophosphataemia [Recovered/Resolved]
  - Osteoporosis [Recovered/Resolved]
  - Renal tubular disorder [Recovered/Resolved]
